FAERS Safety Report 6718144-8 (Version None)
Quarter: 2010Q2

REPORT INFORMATION
  Report Type: 
  Country: None (occurrence: None)
  Receive Date: 20100510
  Receipt Date: 20100428
  Transmission Date: 20101027
  Serious: Yes (Hospitalization)
  Sender: FDA-Public Use
  Company Number: B0651589A

PATIENT
  Age: 64 Year
  Sex: Female

DRUGS (6)
  1. AUGMENTIN '125' [Suspect]
     Dosage: 625MG THREE TIMES PER DAY
     Route: 048
     Dates: start: 20100402, end: 20100407
  2. IMMUNE GLOBULIN NOS [Suspect]
     Dosage: 30G PER DAY
     Route: 042
     Dates: start: 20100401, end: 20100405
  3. FRAGMIN [Concomitant]
     Indication: DRUG USE FOR UNKNOWN INDICATION
     Dosage: 5000IU PER DAY
     Route: 058
     Dates: start: 20100331, end: 20100415
  4. BACITRACIN + LYSOZYME [Concomitant]
     Indication: DRUG USE FOR UNKNOWN INDICATION
     Route: 048
     Dates: start: 20100407, end: 20100411
  5. RENITEN MITE [Concomitant]
     Dosage: 10MG PER DAY
     Route: 048
     Dates: start: 20100401
  6. CLARITHROMYCIN [Concomitant]
     Indication: UPPER RESPIRATORY TRACT INFECTION
     Route: 065
     Dates: end: 20100328

REACTIONS (5)
  - BLOOD LACTATE DEHYDROGENASE INCREASED [None]
  - DYSPNOEA EXERTIONAL [None]
  - HAEMOGLOBIN DECREASED [None]
  - HAEMOLYTIC ANAEMIA [None]
  - HAPTOGLOBIN DECREASED [None]
